FAERS Safety Report 10083482 (Version 1)
Quarter: 2014Q2

REPORT INFORMATION
  Report Type: Spontaneous
  Country: JP (occurrence: None)
  Receive Date: 20140415
  Receipt Date: 20140415
  Transmission Date: 20141212
  Serious: Yes (Hospitalization)
  Sender: FDA-Public Use
  Company Number: FK201401297

PATIENT
  Age: 58 Year
  Sex: Female
  Weight: 60 kg

DRUGS (1)
  1. GEMCITABINE (GEMCITABINE) [Suspect]
     Indication: GALLBLADDER CANCER

REACTIONS (7)
  - Raynaud^s phenomenon [None]
  - Hypertensive emergency [None]
  - Haemolytic uraemic syndrome [None]
  - Pleural effusion [None]
  - Ascites [None]
  - Antinuclear antibody positive [None]
  - Interstitial lung disease [None]
